FAERS Safety Report 7650822-9 (Version None)
Quarter: 2011Q3

REPORT INFORMATION
  Report Type: 
  Country: None (occurrence: None)
  Receive Date: 20110802
  Receipt Date: 20110725
  Transmission Date: 20111222
  Serious: Yes (Hospitalization, Other)
  Sender: FDA-Public Use
  Company Number: US-BAYER-2011-026274

PATIENT
  Age: 30 Year
  Sex: Female
  Weight: 60.771 kg

DRUGS (6)
  1. YAZ [Suspect]
     Indication: CONTRACEPTION
     Dosage: UNK
     Dates: start: 20080830, end: 20090530
  2. ASCORBIC ACID [Concomitant]
     Dosage: UNK
     Dates: start: 20000101
  3. DROSPIRENONE AND ETHINYL ESTRADIOL [Suspect]
     Indication: CONTRACEPTION
     Dosage: UNK
     Dates: start: 20090530, end: 20091114
  4. NSAID'S [Concomitant]
     Dosage: UNK
     Dates: start: 20000101
  5. LORTAB [Concomitant]
     Indication: PAIN
  6. TANDEM [Concomitant]
     Indication: IRON DEFICIENCY
     Dosage: UNK
     Dates: start: 20090101, end: 20100101

REACTIONS (2)
  - CHOLECYSTITIS CHRONIC [None]
  - GALLBLADDER DISORDER [None]
